FAERS Safety Report 8250454-8 (Version None)
Quarter: 2012Q2

REPORT INFORMATION
  Report Type: 
  Country: None (occurrence: None)
  Receive Date: 20120402
  Receipt Date: 20120402
  Transmission Date: 20120825
  Serious: Yes (Other)
  Sender: FDA-Public Use
  Company Number: None

PATIENT
  Sex: Female

DRUGS (2)
  1. LEXAPRO [Concomitant]
  2. RECLAST [Suspect]
     Indication: BONE DISORDER
     Dosage: THEY SAID SMALLEST AMT
     Dates: start: 20111207, end: 20111207

REACTIONS (8)
  - HEADACHE [None]
  - ARTHRALGIA [None]
  - SWELLING FACE [None]
  - LYMPHADENOPATHY [None]
  - OEDEMA PERIPHERAL [None]
  - DIZZINESS [None]
  - PAIN IN JAW [None]
  - NAUSEA [None]
